FAERS Safety Report 4669915-3 (Version None)
Quarter: 2005Q2

REPORT INFORMATION
  Report Type: 
  Country: None (occurrence: None)
  Receive Date: 20050523
  Receipt Date: 20050516
  Transmission Date: 20051028
  Serious: Yes (Hospitalization)
  Sender: FDA-Public Use
  Company Number: PHBS2005IN06955

PATIENT
  Age: 76 Year
  Sex: Male

DRUGS (5)
  1. VOVERAN [Suspect]
     Indication: FEMUR FRACTURE
     Dosage: 50 MG, BID
     Route: 048
  2. TAXIM [Concomitant]
     Dosage: 1 G, BID
  3. GENTAMICIN [Concomitant]
     Dosage: 80 MG, BID
  4. RANTAC [Concomitant]
     Dosage: 150 MG, QD
  5. CARBAMAZEPINE [Suspect]
     Dosage: 100 MG/DAY

REACTIONS (2)
  - GASTROINTESTINAL HAEMORRHAGE [None]
  - HAEMATEMESIS [None]
